FAERS Safety Report 5015318-1 (Version None)
Quarter: 2006Q2

REPORT INFORMATION
  Report Type: 
  Country: None (occurrence: None)
  Receive Date: 20060530
  Receipt Date: 20060530
  Transmission Date: 20061013
  Serious: No
  Sender: FDA-Public Use
  Company Number: None

PATIENT
  Age: 60 Year
  Sex: Male

DRUGS (2)
  1. MORPHINE [Suspect]
     Indication: RESPIRATORY DISORDER
     Dosage: IV
     Route: 042
     Dates: start: 20050521
  2. PHENERGAN [Suspect]
     Dosage: IV
     Route: 042
     Dates: start: 20050521

REACTIONS (5)
  - BLOOD PRESSURE INCREASED [None]
  - DYSPNOEA [None]
  - LETHARGY [None]
  - OXYGEN SATURATION DECREASED [None]
  - PYREXIA [None]
